FAERS Safety Report 11231373 (Version 1)
Quarter: 2015Q2

REPORT INFORMATION
  Report Type: Spontaneous
  Country: US (occurrence: None)
  Receive Date: 20150630
  Receipt Date: 20150630
  Transmission Date: 20150821
  Serious: Yes (Other)
  Sender: FDA-Public Use
  Company Number: None

PATIENT
  Age: 67 Year
  Sex: Female
  Weight: 81 kg

DRUGS (27)
  1. AMLODIPINE (NORVASC) [Concomitant]
  2. ASCORBIC ACID (VITAMIN  C) [Concomitant]
     Active Substance: ASCORBIC ACID
  3. DEXLANSOPRAZOLE (DEXILANT) [Concomitant]
  4. METOPOLOL (LOPRESSOR) [Concomitant]
  5. GLUCOSAM SUL NA/CHONDR S A NA (GLUCOSAMINE + CHONROIT SUL. NA) [Concomitant]
  6. LINACLOTIDE (LINZESS) [Concomitant]
  7. MULTIVITS W-FE, OTHER MIN (CENTRUM) [Concomitant]
  8. NITROGLCERIN (NITROSTAT) [Concomitant]
  9. SULFACETAMIDE SODIUM, (KLARON) [Concomitant]
  10. CALCIUM CITRATE/VITAMIN D3 (CITRACAL + D) [Concomitant]
  11. CLONAZEPAM (KLONOPIN) [Concomitant]
  12. MULTIHANCE [Suspect]
     Active Substance: GADOBENATE DIMEGLUMINE
     Indication: NUCLEAR MAGNETIC RESONANCE IMAGING
     Route: 042
     Dates: start: 20150605, end: 20150605
  13. ALLOPURINOL (ZYLOPRIM) [Concomitant]
  14. HYDROCODONE-ACETAMINOPHEN (NORCO) [Concomitant]
  15. GUAIFENESIN/D D-METHORPHAN HB (MUCINEX DM) [Concomitant]
  16. OMEGA-3 ACID ETHYL ESTGERS (LOVAZA) [Concomitant]
  17. POTASSIUM CHLORIDE (KLOR-CON) [Concomitant]
  18. SIMETHICONE [Concomitant]
     Active Substance: DIMETHICONE\SILICON DIOXIDE\SIMETHICONE
  19. MULTIHANCE [Suspect]
     Active Substance: GADOBENATE DIMEGLUMINE
     Indication: SCAN WITH CONTRAST
     Route: 042
     Dates: start: 20150605, end: 20150605
  20. VIT. C BISACODYL [Concomitant]
  21. IPRATROPIUM (ATROVENT) [Concomitant]
  22. METHYLPREDNISOLONE (MEDROL, PAK) [Concomitant]
  23. POTASSIUM [Concomitant]
     Active Substance: POTASSIUM
  24. PRAVACHOL [Concomitant]
     Active Substance: PRAVASTATIN SODIUM
  25. PLAVIX [Concomitant]
     Active Substance: CLOPIDOGREL BISULFATE
  26. PROMETHAZINE (PHENERAN) [Concomitant]
  27. CYCLOBENAZEPRINE (FEXERIL) [Concomitant]

REACTIONS (1)
  - Contrast media allergy [None]

NARRATIVE: CASE EVENT DATE: 20150605
